FAERS Safety Report 8721857 (Version 2)
Quarter: 2012Q4

REPORT INFORMATION
  Report Type: 
  Country: JP (occurrence: JP)
  Receive Date: 20120814
  Receipt Date: 20120911
  Transmission Date: 20130627
  Serious: No
  Sender: FDA-Public Use
  Company Number: PHHY2012JP069771

PATIENT
  Sex: Male

DRUGS (1)
  1. ILARIS [Suspect]
     Indication: CRYOPYRIN ASSOCIATED PERIODIC SYNDROME
     Dosage: 150 mg, once every 4 weeks
     Route: 058

REACTIONS (10)
  - Contusion [Unknown]
  - Skin exfoliation [Unknown]
  - Nasopharyngitis [Unknown]
  - Abdominal discomfort [Unknown]
  - Sinusitis [Unknown]
  - Impetigo [Unknown]
  - Wound infection [Unknown]
  - Headache [Unknown]
  - Vomiting [Unknown]
  - Drug effect incomplete [Unknown]
